FAERS Safety Report 19026545 (Version 1)
Quarter: 2021Q1

REPORT INFORMATION
  Report Type: Spontaneous
  Country: CA (occurrence: CA)
  Receive Date: 20210318
  Receipt Date: 20210318
  Transmission Date: 20210420
  Serious: Yes (Hospitalization)
  Sender: FDA-Public Use
  Company Number: CA-IPCA LABORATORIES LIMITED-IPC-2021-CA-000629

PATIENT

DRUGS (5)
  1. DIMENHHYDRINATE [Suspect]
     Active Substance: DIMENHYDRINATE
     Indication: VOMITING
     Dosage: 50 MILLIGRAM
     Route: 065
  2. ONDANSETRON [Suspect]
     Active Substance: ONDANSETRON
     Indication: VOMITING
     Dosage: 8 MILLIGRAM
     Route: 065
  3. N?ACETYLCYSTEINE [Suspect]
     Active Substance: ACETYLCYSTEINE
     Indication: PRODUCT USED FOR UNKNOWN INDICATION
     Dosage: 1242.2 MILLIGRAM/KILOGRAM
     Route: 042
  4. PARACETAMOL [Suspect]
     Active Substance: ACETAMINOPHEN
     Indication: PRODUCT USED FOR UNKNOWN INDICATION
     Dosage: 11.5 GRAM
     Route: 048
  5. METOCLOPRAMIDE. [Suspect]
     Active Substance: METOCLOPRAMIDE
     Indication: VOMITING
     Dosage: 10 MILLIGRAM
     Route: 065

REACTIONS (5)
  - Vomiting [Unknown]
  - Overdose [Unknown]
  - Flushing [Unknown]
  - Rash maculo-papular [Unknown]
  - Nausea [Unknown]
